FAERS Safety Report 14730694 (Version 1)
Quarter: 2018Q2

REPORT INFORMATION
  Report Type: Spontaneous
  Country: FR (occurrence: FR)
  Receive Date: 20180406
  Receipt Date: 20180406
  Transmission Date: 20180711
  Serious: Yes (Hospitalization)
  Sender: FDA-Public Use
  Company Number: FR-BAYER-2018-055755

PATIENT
  Age: 29 Year
  Sex: Male

DRUGS (3)
  1. KOVALTRY [Suspect]
     Active Substance: ANTIHEMOPHILIC FACTOR, HUMAN RECOMBINANT
     Indication: FACTOR VIII DEFICIENCY
     Dosage: 1750 IU, UNK
     Route: 041
     Dates: start: 20180209, end: 20180209
  2. MORPHINE [Concomitant]
     Active Substance: MORPHINE
     Route: 041
  3. KOGENATE [Concomitant]
     Active Substance: ANTIHEMOPHILIC FACTOR, HUMAN RECOMBINANT
     Route: 042

REACTIONS (1)
  - Palatal oedema [Recovering/Resolving]

NARRATIVE: CASE EVENT DATE: 20180209
